FAERS Safety Report 5078144-3 (Version None)
Quarter: 2006Q3

REPORT INFORMATION
  Report Type: 
  Country: None (occurrence: None)
  Receive Date: 20060720
  Receipt Date: 20060220
  Transmission Date: 20061208
  Serious: Yes (Other)
  Sender: FDA-Public Use
  Company Number: 2006MP000191

PATIENT
  Age: 73 Year
  Sex: Male

DRUGS (4)
  1. AGGRASTAT [Suspect]
     Indication: ANGINA UNSTABLE
     Dosage: IV
     Route: 042
     Dates: start: 20051014, end: 20051001
  2. ASPIRIN [Concomitant]
  3. CLOPIDOGREL BISULFATE [Concomitant]
  4. HEPARIN LOW MOLECULAR WEIGHT [Concomitant]

REACTIONS (1)
  - MYOCARDIAL INFARCTION [None]
